FAERS Safety Report 5131443-9 (Version None)
Quarter: 2006Q4

REPORT INFORMATION
  Report Type: 
  Country: None (occurrence: None)
  Receive Date: 20061020
  Receipt Date: 20061013
  Transmission Date: 20070319
  Serious: Yes (Other)
  Sender: FDA-Public Use
  Company Number: IT-BRISTOL-MYERS SQUIBB COMPANY-13541545

PATIENT

DRUGS (1)
  1. HYDROXYUREA [Suspect]

REACTIONS (2)
  - MYOCARDIAL INFARCTION [None]
  - SKIN ULCER [None]
